FAERS Safety Report 10697703 (Version 12)
Quarter: 2022Q4

REPORT INFORMATION
  Report Type: Spontaneous
  Country: US (occurrence: US)
  Receive Date: 20150108
  Receipt Date: 20221004
  Transmission Date: 20230112
  Serious: Yes (Hospitalization, Other)
  Sender: FDA-Public Use
  Company Number: US-PFIZER INC-2015003827

PATIENT
  Age: 64 Year
  Sex: Male
  Weight: 99.79 kg

DRUGS (16)
  1. RAPAMUNE [Suspect]
     Active Substance: SIROLIMUS
     Indication: Renal transplant
     Dosage: 1 MG, 3X/DAY (3 MG DAILY)
     Route: 048
  2. RAPAMUNE [Suspect]
     Active Substance: SIROLIMUS
     Indication: Renal failure
     Dosage: 3 MG, 1X/DAY
     Route: 048
     Dates: start: 20160708
  3. RAPAMUNE [Suspect]
     Active Substance: SIROLIMUS
     Indication: Chronic kidney disease
     Dosage: 1 MG, 2X/DAY
  4. RAPAMUNE [Suspect]
     Active Substance: SIROLIMUS
     Dosage: 3 MG, 1X/DAY
     Route: 048
  5. RAPAMUNE [Suspect]
     Active Substance: SIROLIMUS
     Dosage: 3 DF, DAILY ((TAKES 3 A DAY))
     Dates: start: 2008
  6. RAPAMUNE [Suspect]
     Active Substance: SIROLIMUS
     Dosage: 3 MG, DAILY (30 DAY SUPPLY, QUANTITY 90)
     Route: 048
  7. AMLODIPINE [Concomitant]
     Active Substance: AMLODIPINE BESYLATE
     Dosage: 10 MG, UNK
  8. SODIUM BICARBONATE [Concomitant]
     Active Substance: SODIUM BICARBONATE
     Dosage: 65 MG, UNK
  9. AZATHIOPRINE [Concomitant]
     Active Substance: AZATHIOPRINE
     Dosage: 50 MG, UNK
  10. METOPROLOL [Concomitant]
     Active Substance: METOPROLOL
     Dosage: 100 MG, 1X/DAY
  11. ATORVASTATIN [Concomitant]
     Active Substance: ATORVASTATIN
     Dosage: 20 MG, 1X/DAY
  12. ELIQUIS [Concomitant]
     Active Substance: APIXABAN
     Dosage: 2.5 MG, 2X/DAY
  13. FINASTERIDE [Concomitant]
     Active Substance: FINASTERIDE
     Dosage: 5 MG, 1X/DAY
  14. FUROSEMIDE [Concomitant]
     Active Substance: FUROSEMIDE
     Dosage: 40 MG, 1X/DAY
  15. VITAMIN B2 [Concomitant]
     Active Substance: RIBOFLAVIN
     Dosage: 125 MG, WEEKLY
  16. CLONIDINE [Concomitant]
     Active Substance: CLONIDINE
     Indication: Blood pressure abnormal
     Dosage: 0.3 MG, WEEKLY

REACTIONS (3)
  - Laryngeal cancer [Recovered/Resolved]
  - Illness [Recovered/Resolved]
  - Dysphonia [Recovered/Resolved]

NARRATIVE: CASE EVENT DATE: 20140701
